FAERS Safety Report 5356379-X (Version None)
Quarter: 2007Q2

REPORT INFORMATION
  Report Type: 
  Country: None (occurrence: None)
  Receive Date: 20070530
  Receipt Date: 20061106
  Transmission Date: 20071010
  Serious: Yes (Hospitalization)
  Sender: FDA-Public Use
  Company Number: US200609005389

PATIENT
  Age: 40 Year
  Sex: Male
  Weight: 90.7 kg

DRUGS (6)
  1. ZYPREXA [Suspect]
     Indication: MENTAL DISORDER
     Dates: start: 20010101
  2. PAXIL [Concomitant]
  3. VIVACTIL [Concomitant]
  4. ZOLOFT [Concomitant]
  5. REMERON [Concomitant]
  6. EFFEXOR [Concomitant]

REACTIONS (6)
  - BLOOD CHOLESTEROL INCREASED [None]
  - DIABETES MELLITUS [None]
  - HYPERTENSION [None]
  - METABOLIC DISORDER [None]
  - OBESITY [None]
  - WEIGHT DECREASED [None]
